FAERS Safety Report 25749913 (Version 1)
Quarter: 2025Q3

REPORT INFORMATION
  Report Type: Spontaneous
  Country: US (occurrence: US)
  Receive Date: 20250902
  Receipt Date: 20250902
  Transmission Date: 20251021
  Serious: No
  Sender: ABBVIE
  Company Number: US-ABBVIE-6434001

PATIENT
  Age: 21 Year
  Sex: Female

DRUGS (1)
  1. VRAYLAR [Suspect]
     Active Substance: CARIPRAZINE
     Indication: Mood swings
     Route: 048

REACTIONS (5)
  - Coeliac disease [Unknown]
  - Gastrointestinal disorder [Unknown]
  - Off label use [Unknown]
  - Pyrexia [Unknown]
  - Adverse drug reaction [Unknown]

NARRATIVE: CASE EVENT DATE: 20250101
